FAERS Safety Report 16731112 (Version 2)
Quarter: 2019Q3

REPORT INFORMATION
  Report Type: Spontaneous
  Country: US (occurrence: US)
  Receive Date: 20190822
  Receipt Date: 20190920
  Transmission Date: 20191005
  Serious: Yes (Hospitalization)
  Sender: FDA-Public Use
  Company Number: US-OSMOTICA_PHARMACEUTICAL_US_LLC-POI0573201900333

PATIENT
  Age: 76 Year
  Sex: Male
  Weight: 83.54 kg

DRUGS (2)
  1. OSMOLEX ER [Suspect]
     Active Substance: AMANTADINE
     Indication: PARKINSON^S DISEASE
     Dates: start: 201907, end: 201908
  2. OSMOLEX ER [Suspect]
     Active Substance: AMANTADINE
     Dates: start: 20190701, end: 201907

REACTIONS (7)
  - Balance disorder [Recovering/Resolving]
  - Hypersensitivity [Recovered/Resolved]
  - Tremor [Recovering/Resolving]
  - Nasopharyngitis [Recovered/Resolved]
  - Gait inability [Recovering/Resolving]
  - Concussion [Recovered/Resolved]
  - Fall [Recovered/Resolved]

NARRATIVE: CASE EVENT DATE: 201907
